FAERS Safety Report 5212627-8 (Version None)
Quarter: 2006Q4

REPORT INFORMATION
  Report Type: 
  Country: None (occurrence: None)
  Receive Date: 20061115
  Receipt Date: 20060928
  Transmission Date: 20070319
  Serious: No
  Sender: FDA-Public Use
  Company Number: 200618195US

PATIENT
  Age: 60 Year
  Sex: Male

DRUGS (4)
  1. APIDRA [Suspect]
     Indication: DIABETES MELLITUS NON-INSULIN-DEPENDENT
  2. LANTUS [Suspect]
     Indication: DIABETES MELLITUS NON-INSULIN-DEPENDENT
     Dosage: 70 U HS
  3. OPTICLIK [Suspect]
  4. GLIPIZIDE [Concomitant]

REACTIONS (2)
  - BLOOD GLUCOSE INCREASED [None]
  - MEDICATION ERROR [None]
